FAERS Safety Report 21746144 (Version 1)
Quarter: 2022Q4

REPORT INFORMATION
  Report Type: Spontaneous
  Country: ES (occurrence: ES)
  Receive Date: 20221219
  Receipt Date: 20221219
  Transmission Date: 20230113
  Serious: Yes (Hospitalization, Other)
  Sender: FDA-Public Use
  Company Number: ES-SA-SAC20221215000160

PATIENT
  Age: 65 Year
  Sex: Male
  Weight: 67 kg

DRUGS (2)
  1. TOUJEO [Suspect]
     Active Substance: INSULIN GLARGINE
     Indication: Type 2 diabetes mellitus
     Dosage: 20 IU, QD
     Route: 058
  2. BATIDOS NESTLE [Concomitant]
     Dosage: UNK

REACTIONS (7)
  - Delirium [Unknown]
  - Gastric cancer [Unknown]
  - Weight decreased [Not Recovered/Not Resolved]
  - Incoherent [Unknown]
  - Hypophagia [Not Recovered/Not Resolved]
  - Blood potassium decreased [Unknown]
  - Hypoglycaemia [Unknown]

NARRATIVE: CASE EVENT DATE: 20221208
